FAERS Safety Report 10378796 (Version 1)
Quarter: 2014Q1

REPORT INFORMATION
  Report Type: Spontaneous
  Country: US (occurrence: None)
  Receive Date: 20140306
  Receipt Date: 20140306
  Transmission Date: 20141002
  Serious: Yes (Other)
  Sender: FDA-Public Use
  Company Number: 163-21880-13034186

PATIENT
  Age: 75 Year
  Sex: Female
  Weight: 84.37 kg

DRUGS (3)
  1. REVLIMID (LENALIDOMIDE) (CAPSULES) [Suspect]
     Indication: MYELODYSPLASTIC SYNDROME
     Route: 048
     Dates: start: 20130131, end: 201303
  2. ADVIL (IBUPROFEN) [Concomitant]
  3. VERAPAMIL [Concomitant]

REACTIONS (1)
  - Platelet count decreased [None]
